FAERS Safety Report 9644052 (Version 1)
Quarter: 2013Q4

REPORT INFORMATION
  Report Type: Spontaneous
  Country: US (occurrence: US)
  Receive Date: 20131024
  Receipt Date: 20131024
  Transmission Date: 20140711
  Serious: Yes (Other)
  Sender: FDA-Public Use
  Company Number: US-B.I. PHARMACEUTICALS,INC./RIDGEFIELD-2013-BI-33552BP

PATIENT
  Sex: Male
  Weight: 91 kg

DRUGS (19)
  1. PRADAXA [Suspect]
     Indication: ATRIAL FIBRILLATION
     Dosage: 300 MG
     Route: 048
     Dates: start: 201108
  2. LOVAZA [Concomitant]
     Indication: BLOOD CHOLESTEROL INCREASED
     Dosage: 4 G
     Route: 048
  3. CLONAZEPAM [Concomitant]
     Indication: POOR QUALITY SLEEP
     Dosage: 0.5 MG
     Route: 048
  4. DEPAKOTE TB [Concomitant]
     Dosage: 1000 MG
     Route: 048
  5. LANTUS SOLOSTAR PEN [Concomitant]
     Indication: TYPE 2 DIABETES MELLITUS
     Dosage: (SUBCUTANEOUS) STRENGTH: 28 UNITS; DAILY DOSE: 28 UNITS
     Route: 058
  6. ZONISAMIDE [Concomitant]
     Indication: PRODUCT USED FOR UNKNOWN INDICATION
     Dosage: 100 MG
     Route: 048
  7. DILTIAZEM [Concomitant]
     Indication: CARDIAC DISORDER
     Dosage: 60 MG
     Route: 048
  8. METOPROLOL [Concomitant]
     Indication: PRODUCT USED FOR UNKNOWN INDICATION
     Dosage: 100 MG
     Route: 048
  9. PRAVASTATIN [Concomitant]
     Indication: BLOOD CHOLESTEROL INCREASED
     Dosage: 80 MG
     Route: 048
  10. ZYRTEC [Concomitant]
     Indication: HYPERSENSITIVITY
     Route: 048
  11. AMIODRONE [Concomitant]
     Indication: CARDIAC DISORDER
     Dosage: 200 MG
     Route: 048
  12. CITALONPRAM [Concomitant]
     Indication: NERVOUSNESS
     Dosage: 40 MG
     Route: 048
  13. FUROSEMIDE [Concomitant]
     Indication: FLUID RETENTION
     Dosage: 20 MG
     Route: 048
  14. GABAPENTIN [Concomitant]
     Dosage: 900 MG
     Route: 048
  15. GLIMEPIRIDE [Concomitant]
     Indication: TYPE 2 DIABETES MELLITUS
     Dosage: 8 MG
     Route: 048
  16. HCTZ [Concomitant]
     Indication: HYPERTENSION
     Dosage: 25 MG
     Route: 048
  17. MELOXICAM [Concomitant]
     Indication: ARTHRITIS
     Dosage: 15 MG
     Route: 048
  18. BABY ASPIRIN [Concomitant]
     Indication: CARDIAC DISORDER
     Dosage: 324 MG
     Route: 048
  19. NEXIUM [Concomitant]
     Indication: GASTROOESOPHAGEAL REFLUX DISEASE
     Dosage: 40 MG
     Route: 048

REACTIONS (7)
  - Cerebrovascular accident [Not Recovered/Not Resolved]
  - Blindness [Unknown]
  - Headache [Not Recovered/Not Resolved]
  - Vision blurred [Not Recovered/Not Resolved]
  - Visual field defect [Not Recovered/Not Resolved]
  - Balance disorder [Not Recovered/Not Resolved]
  - Dizziness [Not Recovered/Not Resolved]
